FAERS Safety Report 6474215-5 (Version None)
Quarter: 2009Q4

REPORT INFORMATION
  Report Type: 
  Country: None (occurrence: None)
  Receive Date: 20091204
  Receipt Date: 20091124
  Transmission Date: 20100525
  Serious: Yes (Hospitalization)
  Sender: FDA-Public Use
  Company Number: US-ELI_LILLY_AND_COMPANY-US200910006875

PATIENT
  Sex: Female
  Weight: 63.129 kg

DRUGS (13)
  1. FORTEO [Suspect]
     Indication: OSTEOPOROSIS
     Dosage: 20 UG, DAILY (1/D)
     Dates: start: 20090916, end: 20090101
  2. NOVOLOG [Concomitant]
  3. LEVEMIR [Concomitant]
  4. GLUCAGEN [Concomitant]
  5. ZETIA [Concomitant]
     Dosage: 10 MG, DAILY (1/D)
     Route: 048
  6. LISINOPRIL [Concomitant]
     Dosage: 20 MG, 2/D
     Route: 048
  7. INDERAL [Concomitant]
     Dosage: 20 MG, 2/D
  8. CALCIUM [Concomitant]
     Dosage: 500 MG, 2/D
  9. TYLENOL (CAPLET) [Concomitant]
     Indication: PAIN
     Dosage: 1300 MG, AS NEEDED
  10. CYANOCOBALAMIN [Concomitant]
     Dosage: 1000 UG, MONTHLY (1/M)
  11. GLUCOSAMINE /CHOND /03040701/ [Concomitant]
     Dosage: UNK, DAILY (1/D)
  12. VITAMIN D3 [Concomitant]
     Dosage: 1000 IU, DAILY (1/D)
  13. VITAMIN D [Concomitant]
     Dosage: 50000 IU, UNK

REACTIONS (6)
  - CONFUSIONAL STATE [None]
  - DIABETES MELLITUS [None]
  - DISORIENTATION [None]
  - HEADACHE [None]
  - SOMNOLENCE [None]
  - SPEECH DISORDER [None]
